FAERS Safety Report 9738785 (Version 3)
Quarter: 2014Q1

REPORT INFORMATION
  Report Type: Report from Study
  Country: US (occurrence: US)
  Receive Date: 20131209
  Receipt Date: 20140117
  Transmission Date: 20141002
  Serious: Yes (Hospitalization)
  Sender: FDA-Public Use
  Company Number: US-JNJFOC-20131200732

PATIENT
  Age: 18 Year
  Sex: Female
  Weight: 69.1 kg

DRUGS (14)
  1. REMICADE [Suspect]
     Indication: CROHN^S DISEASE
     Route: 042
     Dates: start: 20081018, end: 20090912
  2. 5-ASA [Concomitant]
     Route: 048
  3. METHOTREXATE [Concomitant]
     Route: 065
  4. CIMZIA [Concomitant]
     Route: 065
     Dates: start: 20130815
  5. ADAPALENE [Concomitant]
     Route: 065
  6. AMITIZA [Concomitant]
     Route: 065
  7. CALCIUM [Concomitant]
     Route: 065
  8. VITAMIN D [Concomitant]
     Route: 065
  9. CLEOCIN [Concomitant]
     Route: 065
  10. DULCOLAX [Concomitant]
     Route: 065
  11. HYOSCYAMINE [Concomitant]
     Route: 065
  12. MIRALAX [Concomitant]
     Route: 065
  13. NEURONTIN [Concomitant]
     Route: 065
  14. ZANTAC [Concomitant]
     Route: 065

REACTIONS (1)
  - Crohn^s disease [Recovered/Resolved]
